FAERS Safety Report 5527846-0 (Version None)
Quarter: 2007Q4

REPORT INFORMATION
  Report Type: 
  Country: None (occurrence: None)
  Receive Date: 20071126
  Receipt Date: 20071126
  Transmission Date: 20080405
  Serious: Yes (Other)
  Sender: FDA-Public Use
  Company Number: None

PATIENT
  Age: 49 Year
  Sex: Male
  Weight: 88.4514 kg

DRUGS (2)
  1. PIROXICAM [Suspect]
     Indication: ARTHRITIS
     Dosage: 20 MG 1 BY MOUTH Q DAY FOR PAIN 1 PILL PER DAY PO
     Route: 048
     Dates: start: 20071001, end: 20071007
  2. PIROXICAM [Suspect]
     Indication: ARTHRITIS
     Dosage: 20 MG 1 BY MOUTH Q DAY FOR PAIN 1 PILL PER DAY PO
     Route: 048
     Dates: start: 20071120, end: 20071122

REACTIONS (7)
  - ABDOMINAL PAIN [None]
  - ARTHRITIS [None]
  - NAUSEA [None]
  - PAIN [None]
  - RASH [None]
  - SECRETION DISCHARGE [None]
  - THERMAL BURN [None]
